FAERS Safety Report 16024501 (Version 3)
Quarter: 2019Q1

REPORT INFORMATION
  Report Type: Report from Study
  Country: US (occurrence: US)
  Receive Date: 20190301
  Receipt Date: 20190321
  Transmission Date: 20190418
  Serious: Yes (Hospitalization)
  Sender: FDA-Public Use
  Company Number: US-ACTELION-A-NJ2019-186575

PATIENT
  Age: 52 Year
  Sex: Female

DRUGS (8)
  1. APEX [Concomitant]
     Dosage: 5 MG, BID
  2. BENZONATATE. [Concomitant]
     Active Substance: BENZONATATE
     Dosage: 100 MG, PRN
  3. GUAIFENESIN AND CODEINE PHOSPHATE [Concomitant]
     Active Substance: CODEINE PHOSPHATE\GUAIFENESIN
     Dosage: 100 MG, PRN
  4. HYDROXYUREA. [Concomitant]
     Active Substance: HYDROXYUREA
     Dosage: 500 MG, TID
  5. OPSUMIT [Suspect]
     Active Substance: MACITENTAN
     Indication: PULMONARY HYPERTENSION
     Dosage: 10 MG, QD
     Route: 048
     Dates: start: 20190210
  6. PROBIOTIC [Concomitant]
     Active Substance: PROBIOTICS NOS
  7. ALBUTEROL. [Concomitant]
     Active Substance: ALBUTEROL
     Dosage: 90 MG, PRN
  8. IPRATROPIUM [Concomitant]
     Active Substance: IPRATROPIUM
     Dosage: UNK, QID
     Dates: start: 201902

REACTIONS (6)
  - Gait disturbance [Recovered/Resolved]
  - Peripheral swelling [Recovering/Resolving]
  - Pulmonary oedema [Unknown]
  - Swelling [Recovered/Resolved]
  - Dysuria [Recovered/Resolved]
  - Unevaluable event [Unknown]

NARRATIVE: CASE EVENT DATE: 20190216
